FAERS Safety Report 10366237 (Version 2)
Quarter: 2014Q3

REPORT INFORMATION
  Report Type: Report from Study
  Country: IT (occurrence: IT)
  Receive Date: 20140806
  Receipt Date: 20140822
  Transmission Date: 20150326
  Serious: Yes (Death, Other)
  Sender: FDA-Public Use
  Company Number: IT-009507513-1408ITA001411

PATIENT
  Age: 52 Year
  Sex: Male

DRUGS (3)
  1. TELAPREVIR [Suspect]
     Active Substance: TELAPREVIR
     Indication: HEPATITIS C
     Dosage: UNK
     Dates: start: 201107, end: 201109
  2. RIBAVIRIN. [Suspect]
     Active Substance: RIBAVIRIN
     Indication: HEPATITIS C
     Dosage: UNK
     Route: 048
     Dates: start: 201107, end: 201109
  3. PEGINTERFERON ALFA-2A [Suspect]
     Active Substance: PEGINTERFERON ALFA-2A
     Indication: HEPATITIS C
     Dosage: UNK
     Dates: start: 201107, end: 201109

REACTIONS (7)
  - Hypercatabolism [Unknown]
  - Anaemia [Unknown]
  - Hepatic failure [Fatal]
  - Multi-organ failure [Fatal]
  - Hepatorenal syndrome [Unknown]
  - Ketoacidosis [Unknown]
  - Dehydration [Unknown]

NARRATIVE: CASE EVENT DATE: 2011
